FAERS Safety Report 15114190 (Version 5)
Quarter: 2019Q4

REPORT INFORMATION
  Report Type: Spontaneous
  Country: US (occurrence: US)
  Receive Date: 20180706
  Receipt Date: 20191126
  Transmission Date: 20200122
  Serious: Yes (Death, Other)
  Sender: FDA-Public Use
  Company Number: US-JNJFOC-20180630391

PATIENT
  Age: 76 Year
  Sex: Male
  Weight: 95.79 kg

DRUGS (1)
  1. ZYTIGA [Suspect]
     Active Substance: ABIRATERONE ACETATE
     Indication: PROSTATE CANCER METASTATIC
     Route: 048
     Dates: start: 20171220, end: 20180621

REACTIONS (4)
  - Back pain [Unknown]
  - Therapeutic product effect decreased [Unknown]
  - Death [Fatal]
  - Prostate cancer metastatic [Unknown]

NARRATIVE: CASE EVENT DATE: 20180606
